FAERS Safety Report 23584893 (Version 5)
Quarter: 2024Q3

REPORT INFORMATION
  Report Type: Spontaneous
  Country: US (occurrence: US)
  Receive Date: 20240301
  Receipt Date: 20240903
  Transmission Date: 20241017
  Serious: Yes (Hospitalization, Other)
  Sender: BRISTOL MYERS SQUIBB
  Company Number: US-BRISTOL-MYERS SQUIBB COMPANY-2024-030615

PATIENT
  Age: 67 Year
  Sex: Male

DRUGS (5)
  1. LENALIDOMIDE [Suspect]
     Active Substance: LENALIDOMIDE
     Indication: Plasma cell myeloma
     Dates: start: 20210407, end: 20210728
  2. LENALIDOMIDE [Suspect]
     Active Substance: LENALIDOMIDE
     Route: 048
     Dates: start: 20210728, end: 20220202
  3. LENALIDOMIDE [Suspect]
     Active Substance: LENALIDOMIDE
     Route: 048
  4. LENALIDOMIDE [Suspect]
     Active Substance: LENALIDOMIDE
     Dates: start: 20220202
  5. LENALIDOMIDE [Suspect]
     Active Substance: LENALIDOMIDE
     Dosage: TAKE 1 CAPSULE (10 MG) BY MOUTH DAILY FOR 21 DAYS
     Route: 048

REACTIONS (15)
  - Arthralgia [Unknown]
  - Sleep disorder [Unknown]
  - Dyspnoea [Unknown]
  - Illness [Unknown]
  - Depression [Unknown]
  - Disturbance in attention [Unknown]
  - Restlessness [Unknown]
  - Pain [Unknown]
  - Fatigue [Unknown]
  - Nausea [Unknown]
  - Pneumonia [Recovering/Resolving]
  - Clostridium difficile infection [Recovering/Resolving]
  - Product supply issue [Unknown]
  - Therapy interrupted [Unknown]
  - Product dose omission issue [Unknown]

NARRATIVE: CASE EVENT DATE: 20240201
